FAERS Safety Report 18537194 (Version 1)
Quarter: 2020Q4

REPORT INFORMATION
  Report Type: Other
  Country: CA (occurrence: CA)
  Receive Date: 20201124
  Receipt Date: 20201124
  Transmission Date: 20210114
  Serious: Yes (Other)
  Sender: FDA-Public Use
  Company Number: CA-CELLTRION INC.-2020CA032015

PATIENT

DRUGS (6)
  1. CYCLOPHOSPHAMIDE. [Concomitant]
     Active Substance: CYCLOPHOSPHAMIDE
     Indication: B-CELL LYMPHOMA
  2. VINCRISTINE [Concomitant]
     Active Substance: VINCRISTINE
     Indication: B-CELL LYMPHOMA
  3. DOXORUBICIN HYDROCHLORIDE. [Concomitant]
     Active Substance: DOXORUBICIN HYDROCHLORIDE
     Indication: B-CELL LYMPHOMA
  4. RITUXIMAB (UNKNOWN) [Suspect]
     Active Substance: RITUXIMAB
     Indication: B-CELL LYMPHOMA
     Dosage: UNK
     Route: 065
  5. RITUXIMAB (UNKNOWN) [Suspect]
     Active Substance: RITUXIMAB
     Dosage: UNK
     Route: 065
  6. PREDNISOLONE. [Concomitant]
     Active Substance: PREDNISOLONE
     Indication: B-CELL LYMPHOMA

REACTIONS (4)
  - Intentional product use issue [Unknown]
  - Off label use [Unknown]
  - Rheumatoid arthritis [Unknown]
  - Renal impairment [Unknown]
